FAERS Safety Report 8355399-0 (Version None)
Quarter: 2012Q2

REPORT INFORMATION
  Report Type: 
  Country: None (occurrence: None)
  Receive Date: 20120511
  Receipt Date: 20120501
  Transmission Date: 20120825
  Serious: Yes (Death)
  Sender: FDA-Public Use
  Company Number: CA-ROCHE-1064947

PATIENT
  Sex: Male
  Weight: 74.91 kg

DRUGS (5)
  1. METHOTREXATE [Concomitant]
  2. COUGH SYRUP NOS [Concomitant]
  3. ACTEMRA [Suspect]
     Indication: RHEUMATOID ARTHRITIS
     Route: 042
     Dates: start: 20120119, end: 20120405
  4. ASPIRIN [Concomitant]
  5. NAPROXEN [Concomitant]

REACTIONS (1)
  - DEATH [None]
